FAERS Safety Report 19036707 (Version 1)
Quarter: 2021Q1

REPORT INFORMATION
  Report Type: Spontaneous
  Country: US (occurrence: US)
  Receive Date: 20210320
  Receipt Date: 20210320
  Transmission Date: 20210420
  Serious: No
  Sender: FDA-Public Use
  Company Number: None

PATIENT
  Age: 32 Year
  Sex: Male

DRUGS (1)
  1. HUMIRA [Suspect]
     Active Substance: ADALIMUMAB
     Indication: PSORIASIS
     Dosage: ?          OTHER FREQUENCY:ON DAY 1;?
     Route: 058
     Dates: start: 202103

REACTIONS (2)
  - Drug delivery system malfunction [None]
  - Drug dose omission by device [None]

NARRATIVE: CASE EVENT DATE: 20210309
